FAERS Safety Report 23462990 (Version 1)
Quarter: 2024Q1

REPORT INFORMATION
  Report Type: Report from Study
  Country: JP (occurrence: JP)
  Receive Date: 20240131
  Receipt Date: 20240131
  Transmission Date: 20240409
  Serious: Yes (Hospitalization)
  Sender: FDA-Public Use
  Company Number: JP-Eisai Medical Research-EC-2023-144477

PATIENT
  Age: 75 Year
  Sex: Male
  Weight: 71.1 kg

DRUGS (14)
  1. LENVATINIB [Suspect]
     Active Substance: LENVATINIB
     Indication: Hepatocellular carcinoma
     Dosage: STARTING DOSE 12 MG (FLUCTUATED DOSAGE)
     Route: 048
     Dates: start: 20220428, end: 20230417
  2. RABEPRAZOLE SODIUM [Suspect]
     Active Substance: RABEPRAZOLE SODIUM
     Indication: Gastritis
     Dosage: FREQUENCY: ONCE
     Route: 048
     Dates: start: 20220422, end: 20230705
  3. PEMBROLIZUMAB [Suspect]
     Active Substance: PEMBROLIZUMAB
     Indication: Hepatocellular carcinoma
     Route: 041
     Dates: start: 20220428, end: 20230620
  4. ETHIODIZED OIL [Suspect]
     Active Substance: ETHIODIZED OIL
     Indication: Hepatocellular carcinoma
     Dosage: ROUTE, FREQUENCY, DOSE UNKNOWN.
     Dates: start: 20220513, end: 20220617
  5. EPIRUBICIN [Suspect]
     Active Substance: EPIRUBICIN
     Indication: Hepatocellular carcinoma
     Dosage: ROUTE, FREQUENCY UNKNOWN.
     Dates: start: 20220513, end: 20220617
  6. AMLODIPINE\TELMISARTAN [Suspect]
     Active Substance: AMLODIPINE\TELMISARTAN
     Indication: Hypertension
     Dosage: ONCE; STRENGTH: 1 TABLET
     Route: 048
     Dates: start: 20210525, end: 20230705
  7. LOXOPROFEN SODIUM [Suspect]
     Active Substance: LOXOPROFEN SODIUM
     Indication: Myalgia
     Route: 048
     Dates: start: 20220531, end: 20230620
  8. SENNOSIDES [Concomitant]
     Active Substance: SENNOSIDES
     Dates: start: 20201212
  9. ROSUVASTATIN [Concomitant]
     Active Substance: ROSUVASTATIN
     Dates: start: 20201222
  10. ASPIRIN [Concomitant]
     Active Substance: ASPIRIN
     Dates: start: 20201222
  11. LIVACT [ISOLEUCINE;LEUCINE;VALINE] [Concomitant]
     Dates: start: 20220514
  12. TENELIGLIPTIN [Concomitant]
     Active Substance: TENELIGLIPTIN
     Dates: start: 20220522
  13. MYSER [DIFLUPREDNATE] [Concomitant]
     Dates: start: 20221213
  14. LEVOTHYROXINE SODIUM [Concomitant]
     Active Substance: LEVOTHYROXINE SODIUM
     Dates: start: 20230125

REACTIONS (1)
  - Tubulointerstitial nephritis [Recovering/Resolving]

NARRATIVE: CASE EVENT DATE: 20230620
